FAERS Safety Report 16828754 (Version 1)
Quarter: 2019Q3

REPORT INFORMATION
  Report Type: Spontaneous
  Country: US (occurrence: US)
  Receive Date: 20190730
  Receipt Date: 20190730
  Transmission Date: 20191005
  Serious: No
  Sender: FDA-Public Use
  Company Number: None

PATIENT
  Age: 3 Year
  Sex: Male

DRUGS (1)
  1. HUMIRA [Suspect]
     Active Substance: ADALIMUMAB
     Indication: PSORIATIC ARTHROPATHY
     Dosage: ?          OTHER DOSE:40MG/0.8ML ;?
     Route: 058
     Dates: start: 20190312

REACTIONS (3)
  - Pain [None]
  - Condition aggravated [None]
  - Peripheral swelling [None]

NARRATIVE: CASE EVENT DATE: 20190729
